FAERS Safety Report 6807426-7 (Version None)
Quarter: 2010Q2

REPORT INFORMATION
  Report Type: 
  Country: None (occurrence: None)
  Receive Date: 20100625
  Receipt Date: 20100617
  Transmission Date: 20101027
  Serious: Yes (Life-Threatening, Hospitalization)
  Sender: FDA-Public Use
  Company Number: 2010AL000110

PATIENT
  Age: 75 Year
  Sex: Female

DRUGS (1)
  1. FOLOTYN [Suspect]
     Indication: T-CELL LYMPHOMA
     Dosage: 20 MG/M**2; ; IV
     Route: 042
     Dates: start: 20100310

REACTIONS (2)
  - BLOOD POTASSIUM DECREASED [None]
  - VENTRICULAR EXTRASYSTOLES [None]
